FAERS Safety Report 18202131 (Version 3)
Quarter: 2021Q1

REPORT INFORMATION
  Report Type: Spontaneous
  Country: US (occurrence: US)
  Receive Date: 20200827
  Receipt Date: 20210203
  Transmission Date: 20210419
  Serious: No
  Sender: FDA-Public Use
  Company Number: US-PFIZER INC-2020164191

PATIENT
  Age: 26 Year
  Sex: Male

DRUGS (3)
  1. XELJANZ [Suspect]
     Active Substance: TOFACITINIB CITRATE
     Dosage: 20 MG, TWICE DAILY
     Route: 048
     Dates: start: 201904
  2. XELJANZ [Suspect]
     Active Substance: TOFACITINIB CITRATE
     Dosage: 10 MG, TWICE DAILY
     Route: 048
     Dates: end: 202012
  3. XELJANZ [Suspect]
     Active Substance: TOFACITINIB CITRATE
     Indication: COLITIS ULCERATIVE
     Dosage: 10 MG, TWICE DAILY
     Route: 048
     Dates: start: 201901

REACTIONS (5)
  - Intentional product misuse [Unknown]
  - Product dose omission issue [Unknown]
  - Prescribed overdose [Unknown]
  - Therapeutic product effect incomplete [Unknown]
  - Drug ineffective [Unknown]

NARRATIVE: CASE EVENT DATE: 201904
